FAERS Safety Report 9744561 (Version 1)
Quarter: 2013Q4

REPORT INFORMATION
  Report Type: Spontaneous
  Country: FR (occurrence: FR)
  Receive Date: 20131210
  Receipt Date: 20131210
  Transmission Date: 20140711
  Serious: Yes (Other)
  Sender: FDA-Public Use
  Company Number: FR-GILEAD-2013-0089318

PATIENT
  Age: 19 Year
  Sex: Male

DRUGS (3)
  1. TRUVADA [Suspect]
     Indication: HIGH RISK SEXUAL BEHAVIOUR
     Route: 048
  2. KALETRA [Suspect]
     Indication: HIGH RISK SEXUAL BEHAVIOUR
     Route: 048
  3. DOXYCYCLINE [Suspect]
     Indication: MALARIA PROPHYLAXIS
     Dosage: 1 DF, QD
     Route: 048
     Dates: start: 20130405, end: 20130612

REACTIONS (3)
  - Staphylococcal infection [Unknown]
  - Erysipelas [Unknown]
  - Impetigo [Unknown]
